FAERS Safety Report 8164294-1 (Version None)
Quarter: 2012Q1

REPORT INFORMATION
  Report Type: 
  Country: None (occurrence: None)
  Receive Date: 20120224
  Receipt Date: 20120223
  Transmission Date: 20120608
  Serious: Yes (Disabling, Other)
  Sender: FDA-Public Use
  Company Number: US-PFIZER INC-2012048708

PATIENT
  Sex: Female

DRUGS (1)
  1. EFFEXOR [Suspect]
     Indication: POST-TRAUMATIC STRESS DISORDER
     Dosage: UNK

REACTIONS (3)
  - VISION BLURRED [None]
  - GAIT DISTURBANCE [None]
  - ROAD TRAFFIC ACCIDENT [None]
